FAERS Safety Report 6584055-4 (Version None)
Quarter: 2010Q1

REPORT INFORMATION
  Report Type: 
  Country: None (occurrence: None)
  Receive Date: 20100213
  Receipt Date: 20100213
  Transmission Date: 20100710
  Serious: Yes (Hospitalization)
  Sender: FDA-Public Use
  Company Number: None

PATIENT
  Age: 40 Year
  Sex: Male
  Weight: 91.7 kg

DRUGS (1)
  1. ZOSYN [Suspect]
     Indication: INFECTION
     Dosage: 2.25 GRAMS Q 6 HOURS IV
     Route: 042
     Dates: start: 20100202, end: 20100204

REACTIONS (7)
  - EYE PRURITUS [None]
  - FEELING ABNORMAL [None]
  - LIP SWELLING [None]
  - PENILE PAIN [None]
  - RASH [None]
  - SKIN EXFOLIATION [None]
  - STEVENS-JOHNSON SYNDROME [None]
